FAERS Safety Report 5478591-1 (Version None)
Quarter: 2007Q4

REPORT INFORMATION
  Report Type: 
  Country: None (occurrence: None)
  Receive Date: 20071005
  Receipt Date: 20070928
  Transmission Date: 20080405
  Serious: Yes (Hospitalization)
  Sender: FDA-Public Use
  Company Number: JP-ELI_LILLY_AND_COMPANY-JP200701006391

PATIENT
  Sex: Male
  Weight: 51 kg

DRUGS (3)
  1. GEMZAR [Suspect]
     Indication: PANCREATIC CARCINOMA
     Dosage: 800 MG, OTHER
     Route: 042
     Dates: start: 20040602, end: 20040812
  2. DECADRON                                /CAN/ [Concomitant]
     Dosage: 8 MG, OTHER
     Route: 042
     Dates: start: 20040602, end: 20040812
  3. ZOFRAN [Concomitant]
     Dosage: 4 MG, OTHER
     Route: 042
     Dates: start: 20040602, end: 20040812

REACTIONS (1)
  - ACUTE MYELOID LEUKAEMIA [None]
